FAERS Safety Report 7398619-1 (Version None)
Quarter: 2011Q2

REPORT INFORMATION
  Report Type: 
  Country: None (occurrence: None)
  Receive Date: 20110407
  Receipt Date: 20110330
  Transmission Date: 20111010
  Serious: No
  Sender: FDA-Public Use
  Company Number: US-BIOGENIDEC-2011BI012137

PATIENT
  Sex: Female

DRUGS (6)
  1. AVONEX [Concomitant]
     Route: 030
     Dates: start: 20080601
  2. TYSABRI [Suspect]
     Route: 042
     Dates: start: 20080804
  3. AVONEX [Concomitant]
     Route: 030
     Dates: start: 20030131, end: 20040202
  4. TYSABRI [Suspect]
     Indication: MULTIPLE SCLEROSIS
     Route: 042
     Dates: start: 20101026
  5. TYSABRI [Suspect]
     Route: 042
     Dates: start: 20050208
  6. AVONEX [Concomitant]
     Indication: MULTIPLE SCLEROSIS
     Route: 030
     Dates: start: 20040730, end: 20070824

REACTIONS (1)
  - DRUG SPECIFIC ANTIBODY PRESENT [None]
